FAERS Safety Report 21995115 (Version 1)
Quarter: 2023Q1

REPORT INFORMATION
  Report Type: Spontaneous
  Country: US (occurrence: None)
  Receive Date: 20230214
  Receipt Date: 20230214
  Transmission Date: 20230417
  Serious: Yes (Hospitalization)
  Sender: FDA-Public Use
  Company Number: None

PATIENT
  Age: 85 Year
  Sex: Female
  Weight: 77.3 kg

DRUGS (2)
  1. CALQUENCE [Suspect]
     Active Substance: ACALABRUTINIB
     Indication: Chronic lymphocytic leukaemia
     Dosage: FREQUENCY : TWICE A DAY;?
     Route: 048
     Dates: start: 20230206, end: 20230211
  2. CALQUENCE [Concomitant]
     Active Substance: ACALABRUTINIB
     Dates: start: 20230206, end: 20230211

REACTIONS (4)
  - Atrial flutter [None]
  - Condition aggravated [None]
  - Therapy interrupted [None]
  - Atrial fibrillation [None]

NARRATIVE: CASE EVENT DATE: 20230211
